FAERS Safety Report 14605918 (Version 1)
Quarter: 2018Q1

REPORT INFORMATION
  Report Type: Spontaneous
  Country: FR (occurrence: FR)
  Receive Date: 20180306
  Receipt Date: 20180306
  Transmission Date: 20180509
  Serious: Yes (Other)
  Sender: FDA-Public Use
  Company Number: FR-MERCK KGAA-2043128

PATIENT
  Age: 72 Year
  Sex: Female
  Weight: 62 kg

DRUGS (1)
  1. NOVOTHYROX [Suspect]
     Active Substance: LEVOTHYROXINE SODIUM
     Indication: HYPOTHYROIDISM
     Route: 048
     Dates: end: 201709

REACTIONS (9)
  - Fatigue [Recovered/Resolved]
  - Periphlebitis [Recovering/Resolving]
  - Headache [Recovering/Resolving]
  - Limb discomfort [Recovering/Resolving]
  - Diarrhoea [Recovering/Resolving]
  - Oedema peripheral [Recovering/Resolving]
  - Alopecia [Recovering/Resolving]
  - Vertigo [Recovering/Resolving]
  - Anosmia [Recovering/Resolving]

NARRATIVE: CASE EVENT DATE: 2017
